FAERS Safety Report 4807928-9 (Version None)
Quarter: 2005Q4

REPORT INFORMATION
  Report Type: 
  Country: None (occurrence: None)
  Receive Date: 20051020
  Receipt Date: 20051018
  Transmission Date: 20060501
  Serious: Yes (Other)
  Sender: FDA-Public Use
  Company Number: S05-FRA-02360-01

PATIENT
  Age: 34 Year
  Sex: Female

DRUGS (3)
  1. SEROPLEX (ESCITALOPRAM) [Suspect]
     Dosage: 10 MG ONCE PO
     Route: 048
     Dates: start: 20050601, end: 20050601
  2. ATARAX [Concomitant]
  3. STRESAM (ETIFOXINE) [Concomitant]

REACTIONS (8)
  - DYSARTHRIA [None]
  - MALAISE [None]
  - MUSCLE TIGHTNESS [None]
  - PARAESTHESIA [None]
  - TACHYCARDIA [None]
  - TREMOR [None]
  - TRISMUS [None]
  - VERTIGO [None]
